FAERS Safety Report 14297939 (Version 5)
Quarter: 2018Q1

REPORT INFORMATION
  Report Type: Spontaneous
  Country: NL (occurrence: NL)
  Receive Date: 20171218
  Receipt Date: 20180131
  Transmission Date: 20180509
  Serious: Yes (Life-Threatening, Other)
  Sender: FDA-Public Use
  Company Number: NL-TEVA-2017-NL-836703

PATIENT
  Sex: Female

DRUGS (18)
  1. FENTANYL. [Suspect]
     Active Substance: FENTANYL
     Route: 065
     Dates: start: 20170208, end: 20170306
  2. FENTANYL. [Suspect]
     Active Substance: FENTANYL
     Route: 065
     Dates: start: 20170308, end: 20170511
  3. FENTANYL. [Suspect]
     Active Substance: FENTANYL
     Dosage: 1-16 DD 1 TABLET
     Route: 065
     Dates: start: 20170721, end: 20170726
  4. FENTANYL. [Suspect]
     Active Substance: FENTANYL
     Dosage: 1200 MICROGRAM DAILY; 12 DD 1 TABLET
     Route: 065
     Dates: start: 20171115, end: 20171122
  5. RECIVIT [Suspect]
     Active Substance: FENTANYL CITRATE
     Dosage: 1-16 DD 1 TABLET
     Route: 060
     Dates: start: 20170721, end: 20170726
  6. SERTRALINE [Concomitant]
     Active Substance: SERTRALINE HYDROCHLORIDE
     Indication: PRODUCT USED FOR UNKNOWN INDICATION
     Dosage: 200 MILLIGRAM DAILY;
     Route: 048
     Dates: start: 20170801
  7. OXYCODON [Concomitant]
     Active Substance: OXYCODONE
     Indication: PAIN
     Route: 048
     Dates: start: 20171031, end: 20171122
  8. FENTANYL. [Suspect]
     Active Substance: FENTANYL
     Indication: PAIN
     Route: 065
     Dates: start: 20170127, end: 20170222
  9. FENTANYL. [Suspect]
     Active Substance: FENTANYL
     Route: 065
     Dates: start: 20170726, end: 20170913
  10. RECIVIT [Suspect]
     Active Substance: FENTANYL CITRATE
     Indication: PAIN
     Dosage: 10 DD 1 TABLET
     Route: 060
     Dates: start: 20170728, end: 20171115
  11. RECIVIT [Suspect]
     Active Substance: FENTANYL CITRATE
     Dosage: 1-10 DD 1 TABLET
     Route: 060
     Dates: start: 20170702, end: 20170717
  12. FENTANYL. [Suspect]
     Active Substance: FENTANYL
     Dosage: 1-10 DD 1 TABLET
     Route: 065
     Dates: start: 20170702, end: 20170717
  13. FENTANYL. [Suspect]
     Active Substance: FENTANYL
     Dosage: 1-4 DD 1 TABLET
     Route: 065
     Dates: start: 20160421, end: 20170515
  14. RECIVIT [Suspect]
     Active Substance: FENTANYL CITRATE
     Dosage: 1-8 DD 1 TABLET
     Route: 065
     Dates: start: 20170519, end: 20170627
  15. PREGABALIN. [Concomitant]
     Active Substance: PREGABALIN
     Indication: PRODUCT USED FOR UNKNOWN INDICATION
     Dosage: 150 MILLIGRAM DAILY;
     Route: 048
     Dates: start: 20171102
  16. FENTANYL. [Suspect]
     Active Substance: FENTANYL
     Route: 065
     Dates: start: 20170526, end: 20170724
  17. RECIVIT [Suspect]
     Active Substance: FENTANYL CITRATE
     Dosage: 1-4 DD 1 TABLET
     Route: 060
     Dates: start: 20160421, end: 20170515
  18. ABSTRAL [Suspect]
     Active Substance: FENTANYL CITRATE
     Indication: PRODUCT USE IN UNAPPROVED INDICATION
     Dosage: 12 DD 1 TABLET
     Route: 060
     Dates: start: 20171115, end: 20171122

REACTIONS (4)
  - Product use in unapproved indication [Recovered/Resolved]
  - Drug dose titration not performed [Unknown]
  - Dependence [Unknown]
  - Inappropriate schedule of drug administration [Recovered/Resolved]

NARRATIVE: CASE EVENT DATE: 20160421
